FAERS Safety Report 7576549-X (Version None)
Quarter: 2011Q2

REPORT INFORMATION
  Report Type: 
  Country: None (occurrence: None)
  Receive Date: 20110628
  Receipt Date: 20110523
  Transmission Date: 20111010
  Serious: Yes (Other)
  Sender: FDA-Public Use
  Company Number: US-BAYER-2011-024713

PATIENT
  Sex: Female

DRUGS (11)
  1. LABETALOL HCL [Concomitant]
  2. ZOCOR [Concomitant]
  3. MAGNEVIST [Suspect]
     Indication: NUCLEAR MAGNETIC RESONANCE IMAGING
  4. COUMADIN [Concomitant]
  5. OPTIMARK [Suspect]
     Indication: NUCLEAR MAGNETIC RESONANCE IMAGING
  6. MULTIHANCE [Suspect]
     Indication: NUCLEAR MAGNETIC RESONANCE IMAGING
  7. PROHANCE [Suspect]
     Indication: NUCLEAR MAGNETIC RESONANCE IMAGING
  8. OMNISCAN [Suspect]
     Indication: NUCLEAR MAGNETIC RESONANCE IMAGING BRAIN
     Dosage: UNK
     Dates: start: 20040720
  9. MULTIHANCE [Suspect]
     Indication: ANGIOGRAM
  10. PROHANCE [Suspect]
     Indication: ANGIOGRAM
  11. OPTIMARK [Suspect]
     Indication: ANGIOGRAM

REACTIONS (13)
  - SKIN HYPERPIGMENTATION [None]
  - DRY SKIN [None]
  - PAIN [None]
  - MUSCLE TIGHTNESS [None]
  - SKIN TIGHTNESS [None]
  - EXTREMITY CONTRACTURE [None]
  - JOINT RANGE OF MOTION DECREASED [None]
  - NEPHROGENIC SYSTEMIC FIBROSIS [None]
  - SKIN HYPERTROPHY [None]
  - SCLERAL DISORDER [None]
  - MACULOPATHY [None]
  - OEDEMA PERIPHERAL [None]
  - SKIN INDURATION [None]
